FAERS Safety Report 5689939-7 (Version None)
Quarter: 2008Q1

REPORT INFORMATION
  Report Type: 
  Country: None (occurrence: None)
  Receive Date: 20080331
  Receipt Date: 20080331
  Transmission Date: 20080703
  Serious: Yes (Hospitalization)
  Sender: FDA-Public Use
  Company Number: None

PATIENT
  Sex: Male
  Weight: 68 kg

DRUGS (1)
  1. CISPLATIN [Suspect]
     Dosage: 366 MG
     Dates: end: 20080317

REACTIONS (3)
  - DEHYDRATION [None]
  - NAUSEA [None]
  - WEIGHT DECREASED [None]
